FAERS Safety Report 7801451-5 (Version None)
Quarter: 2011Q4

REPORT INFORMATION
  Report Type: 
  Country: None (occurrence: None)
  Receive Date: 20111006
  Receipt Date: 20111006
  Transmission Date: 20120403
  Serious: Yes (Hospitalization)
  Sender: FDA-Public Use
  Company Number: None

PATIENT
  Age: 50 Year
  Weight: 109.2 kg

DRUGS (5)
  1. VIT A [Concomitant]
  2. ALEVE [Suspect]
     Indication: BACK PAIN
     Dosage: }3 TABS ? OVER 4 DAYS PO RECENT
     Route: 048
  3. VIT E [Concomitant]
  4. IRON SUPPLEMENTS [Concomitant]
  5. ALBUTEROL INHALER [Concomitant]

REACTIONS (3)
  - GASTROINTESTINAL HAEMORRHAGE [None]
  - GASTRIC ULCER [None]
  - FATIGUE [None]
